FAERS Safety Report 4861811-1 (Version None)
Quarter: 2005Q4

REPORT INFORMATION
  Report Type: 
  Country: None (occurrence: None)
  Receive Date: 20051220
  Receipt Date: 20051005
  Transmission Date: 20060501
  Serious: Yes (Death)
  Sender: FDA-Public Use
  Company Number: US-MERCK-0510USA03428

PATIENT
  Age: 74 Year
  Sex: Female
  Weight: 64 kg

DRUGS (1)
  1. VIOXX [Suspect]
     Indication: BACK PAIN
     Route: 048
     Dates: end: 20030106

REACTIONS (42)
  - ACUTE MYOCARDIAL INFARCTION [None]
  - ANXIETY [None]
  - BACK PAIN [None]
  - CARDIAC ARREST [None]
  - CATARACT [None]
  - CHEST PAIN [None]
  - CONSTIPATION [None]
  - CONTUSION [None]
  - CORONARY ARTERY THROMBOSIS [None]
  - COUGH [None]
  - DEPRESSION [None]
  - DYSPNOEA [None]
  - ECCHYMOSIS [None]
  - EXCORIATION [None]
  - FALL [None]
  - FATIGUE [None]
  - FEMORAL ARTERY OCCLUSION [None]
  - HEAD INJURY [None]
  - HEADACHE [None]
  - HYPERLIPIDAEMIA [None]
  - HYPERTENSION [None]
  - ILIAC ARTERY STENOSIS [None]
  - INSOMNIA [None]
  - INTERMITTENT CLAUDICATION [None]
  - LACERATION [None]
  - LUMBAR SPINAL STENOSIS [None]
  - LYMPHADENOPATHY [None]
  - MICTURITION URGENCY [None]
  - MYOCARDIAL INFARCTION [None]
  - MYOCARDIAL RUPTURE [None]
  - NEUROMA [None]
  - OEDEMA PERIPHERAL [None]
  - OSTEOPOROSIS [None]
  - PAIN IN EXTREMITY [None]
  - PERICARDIAL HAEMORRHAGE [None]
  - PERIPHERAL VASCULAR DISORDER [None]
  - SCIATICA [None]
  - SKIN LACERATION [None]
  - SPONDYLOLISTHESIS [None]
  - STRESS INCONTINENCE [None]
  - URINARY TRACT INFECTION [None]
  - VISION BLURRED [None]
